FAERS Safety Report 6612747-7 (Version None)
Quarter: 2010Q1

REPORT INFORMATION
  Report Type: 
  Country: None (occurrence: None)
  Receive Date: 20100303
  Receipt Date: 20100219
  Transmission Date: 20100710
  Serious: Yes (Other)
  Sender: FDA-Public Use
  Company Number: US-PFIZER INC-2010022369

PATIENT
  Sex: Male

DRUGS (1)
  1. VIAGRA [Suspect]

REACTIONS (2)
  - BACK INJURY [None]
  - VISION BLURRED [None]
